FAERS Safety Report 5278998-1 (Version None)
Quarter: 2007Q1

REPORT INFORMATION
  Report Type: 
  Country: None (occurrence: None)
  Receive Date: 20070328
  Receipt Date: 20061005
  Transmission Date: 20070707
  Serious: No
  Sender: FDA-Public Use
  Company Number: US-AMGEN-US195917

PATIENT
  Sex: Male

DRUGS (7)
  1. NEULASTA [Suspect]
     Indication: CHEMOTHERAPY
  2. NEUPOGEN [Suspect]
     Indication: CHEMOTHERAPY
     Route: 065
  3. VINCRISTINE [Concomitant]
     Route: 065
  4. PREDNISONE [Concomitant]
     Route: 065
  5. CYCLOPHOSPHAMIDE [Concomitant]
     Route: 065
  6. DOXORUBICIN HYDROCHLORIDE [Concomitant]
     Route: 065
  7. RITUXIMAB [Concomitant]
     Route: 065

REACTIONS (1)
  - MUSCULOSKELETAL PAIN [None]
